FAERS Safety Report 16712988 (Version 2)
Quarter: 2019Q3

REPORT INFORMATION
  Report Type: Spontaneous
  Country: US (occurrence: US)
  Receive Date: 20190817
  Receipt Date: 20190826
  Transmission Date: 20191004
  Serious: Yes (Other)
  Sender: FDA-Public Use
  Company Number: US-AMGEN-USASP2019127346

PATIENT
  Age: 72 Year
  Sex: Female
  Weight: 82.54 kg

DRUGS (1)
  1. PROLIA [Suspect]
     Active Substance: DENOSUMAB
     Indication: OSTEOPOROSIS POSTMENOPAUSAL
     Dosage: 60 MILLIGRAM, Q6MO
     Route: 065
     Dates: start: 201901

REACTIONS (3)
  - Blood parathyroid hormone increased [Not Recovered/Not Resolved]
  - Patella fracture [Unknown]
  - Fall [Unknown]

NARRATIVE: CASE EVENT DATE: 2019
